FAERS Safety Report 16727270 (Version 1)
Quarter: 2019Q3

REPORT INFORMATION
  Report Type: Report from Study
  Country: ZA (occurrence: ZA)
  Receive Date: 20190822
  Receipt Date: 20190822
  Transmission Date: 20191005
  Serious: Yes (Other)
  Sender: FDA-Public Use
  Company Number: ZA-SA-2019SA198251

PATIENT
  Age: 51 Year
  Sex: Female

DRUGS (10)
  1. MYLAN METFORMIN [Concomitant]
     Active Substance: METFORMIN HYDROCHLORIDE
     Dosage: AS-850 MG | AB-850 MG | BB-500 MG | BS-500 MG
     Dates: start: 20160327
  2. CARLOC [Concomitant]
     Active Substance: CARVEDILOL
     Dosage: 25 MG, BID
     Dates: start: 20160327
  3. ZYSIM [Concomitant]
     Dosage: 20 MG, HS
     Dates: start: 20160327
  4. ECOTRIN [Concomitant]
     Active Substance: ASPIRIN
     Dosage: 81 MG, QD (AFTER BREAKFAST)
     Dates: start: 20160327
  5. MYLAN FUROSEMIDE [Concomitant]
     Active Substance: FUROSEMIDE
     Dosage: 120 MG, BID (BEFORE BREAKFAST, AFTER REAKFAST)
     Dates: start: 20160327
  6. NO STUDY DRUG GIVEN [Suspect]
     Active Substance: INVESTIGATIONAL PRODUCT
  7. SPIRACTIN [PIMECLONE HYDROCHLORIDE] [Concomitant]
     Dosage: 14.5 MG, QD (AFTER REAKFAST)
     Dates: start: 20160327
  8. OPTISULIN (INSULIN GLARGINE) [Suspect]
     Active Substance: INSULIN GLARGINE
     Dosage: 25 U, HS
     Dates: start: 20190326
  9. ENAP [ENALAPRILAT] [Concomitant]
     Dosage: 2.5 MG, BID
     Dates: start: 20160327
  10. DIAGLUCIDE [Concomitant]
     Active Substance: GLICLAZIDE
     Dosage: 60 MG, QD (BEFORE BREAKFAST)
     Dates: start: 20160327

REACTIONS (4)
  - Infection [Unknown]
  - Nausea [Not Recovered/Not Resolved]
  - Subcutaneous abscess [Not Recovered/Not Resolved]
  - Malaise [Unknown]
